FAERS Safety Report 9260826 (Version 8)
Quarter: 2014Q4

REPORT INFORMATION
  Report Type: Spontaneous
  Country: ES (occurrence: ES)
  Receive Date: 20130429
  Receipt Date: 20141013
  Transmission Date: 20150529
  Serious: Yes (Death, Hospitalization, Other)
  Sender: FDA-Public Use
  Company Number: ES-MERCK-2012SP027883

PATIENT
  Age: 53 Year
  Sex: Female
  Weight: 52 kg

DRUGS (6)
  1. RIBAVIRIN. [Suspect]
     Active Substance: RIBAVIRIN
     Indication: HEPATIC CIRRHOSIS
  2. VICTRELIS [Suspect]
     Active Substance: BOCEPREVIR
     Indication: CHRONIC HEPATITIS C
     Dosage: 4 DF, TID
     Route: 065
     Dates: start: 2012, end: 20120523
  3. PEGASYS [Suspect]
     Active Substance: PEGINTERFERON ALFA-2A
     Indication: CHRONIC HEPATITIS C
     Dosage: 135 MICROGRAM, QW
     Route: 058
     Dates: start: 2012, end: 20120523
  4. VICTRELIS [Suspect]
     Active Substance: BOCEPREVIR
     Indication: HEPATIC CIRRHOSIS
  5. PEGASYS [Suspect]
     Active Substance: PEGINTERFERON ALFA-2A
     Indication: HEPATIC CIRRHOSIS
  6. RIBAVIRIN. [Suspect]
     Active Substance: RIBAVIRIN
     Indication: CHRONIC HEPATITIS C
     Dosage: 2 DF, BID
     Route: 048
     Dates: start: 2012, end: 20120523

REACTIONS (4)
  - Liver disorder [Unknown]
  - Pneumonia [Fatal]
  - Sepsis [Fatal]
  - Renal disorder [Unknown]
